FAERS Safety Report 10833338 (Version 1)
Quarter: 2015Q1

REPORT INFORMATION
  Report Type: Spontaneous
  Country: US (occurrence: US)
  Receive Date: 20150219
  Receipt Date: 20150219
  Transmission Date: 20150721
  Serious: No
  Sender: FDA-Public Use
  Company Number: US-ABBVIE-14P-163-1237214-00

PATIENT
  Age: 67 Year
  Sex: Female
  Weight: 72.64 kg

DRUGS (2)
  1. SIMCOR [Suspect]
     Active Substance: NIACIN\SIMVASTATIN
     Indication: BLOOD CHOLESTEROL INCREASED
     Dosage: 500/20 MILLIGRAMS AT NIGHT
     Dates: start: 201404, end: 201404
  2. LEVOTHYROXINE [Concomitant]
     Active Substance: LEVOTHYROXINE
     Indication: HYPOTHYROIDISM

REACTIONS (9)
  - Anxiety [Recovered/Resolved]
  - Blood pressure increased [Recovered/Resolved]
  - Pain [Recovered/Resolved]
  - Asthenia [Recovered/Resolved]
  - Chest pain [Recovered/Resolved]
  - Abdominal pain upper [Recovered/Resolved]
  - Dry mouth [Recovered/Resolved]
  - Peripheral swelling [Recovered/Resolved]
  - Headache [Recovered/Resolved]

NARRATIVE: CASE EVENT DATE: 201404
